FAERS Safety Report 4339161-1 (Version None)
Quarter: 2004Q2

REPORT INFORMATION
  Report Type: 
  Country: None (occurrence: None)
  Receive Date: 20040415
  Receipt Date: 20040413
  Transmission Date: 20050107
  Serious: Yes (Death)
  Sender: FDA-Public Use
  Company Number: US-BRISTOL-MYERS SQUIBB COMPANY-12557930

PATIENT
  Age: 41 Year
  Sex: Male

DRUGS (1)
  1. AMPHOTERICIN B [Suspect]
     Dosage: DISCONTINUED ON HOSPITAL DAY 10, THEN RESTARTED ON 3 SEPARATE OCCASIONS

REACTIONS (3)
  - HEPATIC FAILURE [None]
  - RENAL FAILURE ACUTE [None]
  - RESPIRATORY FAILURE [None]
